FAERS Safety Report 12982479 (Version 1)
Quarter: 2016Q4

REPORT INFORMATION
  Report Type: Spontaneous
  Country: US (occurrence: US)
  Receive Date: 20161128
  Receipt Date: 20161128
  Transmission Date: 20170207
  Serious: Yes (Life-Threatening, Disabling)
  Sender: FDA-Public Use
  Company Number: None

PATIENT
  Age: 57 Year
  Sex: Male
  Weight: 63 kg

DRUGS (5)
  1. TADALAFIL [Concomitant]
     Active Substance: TADALAFIL
  2. HAWTHORNE SOLID EXTRACT [Concomitant]
  3. LISINOPRILHCTZ [Suspect]
     Active Substance: HYDROCHLOROTHIAZIDE\LISINOPRIL
     Indication: HYPERTENSION
     Dosage: ?          QUANTITY:30 TABLET(S);?
     Route: 048
     Dates: start: 20161124, end: 20161125
  4. SEROYAL SUPER EFA [Concomitant]
  5. THYROID FORMULA BY VITA LOGIC [Concomitant]

REACTIONS (1)
  - Lip swelling [None]

NARRATIVE: CASE EVENT DATE: 20161125
